FAERS Safety Report 15461857 (Version 1)
Quarter: 2018Q4

REPORT INFORMATION
  Report Type: Spontaneous
  Country: US (occurrence: US)
  Receive Date: 20181003
  Receipt Date: 20181003
  Transmission Date: 20190204
  Serious: No
  Sender: FDA-Public Use
  Company Number: US-UPSHER-SMITH LABORATORIES, LLC-2018USL00365

PATIENT
  Age: 81 Year
  Sex: Female
  Weight: 72.56 kg

DRUGS (3)
  1. BACLOFEN. [Suspect]
     Active Substance: BACLOFEN
     Indication: DYSTONIA
     Dosage: 20 MG, 4X/DAY
     Route: 048
     Dates: end: 201807
  2. PROPRANOLOL [Concomitant]
     Active Substance: PROPRANOLOL HYDROCHLORIDE
  3. XANAX [Concomitant]
     Active Substance: ALPRAZOLAM

REACTIONS (4)
  - Foreign body in respiratory tract [Recovered/Resolved]
  - Throat irritation [Recovered/Resolved]
  - Product dose omission [Recovered/Resolved]
  - Urinary tract discomfort [Recovering/Resolving]

NARRATIVE: CASE EVENT DATE: 201807
